FAERS Safety Report 10717792 (Version 3)
Quarter: 2015Q1

REPORT INFORMATION
  Report Type: Spontaneous
  Country: US (occurrence: US)
  Receive Date: 20150116
  Receipt Date: 20150313
  Transmission Date: 20150721
  Serious: Yes (Death)
  Sender: FDA-Public Use
  Company Number: US-009507513-1501USA004124

PATIENT
  Age: 17 Year
  Sex: Female
  Weight: 34.14 kg

DRUGS (13)
  1. ALDACTONE [Concomitant]
     Active Substance: SPIRONOLACTONE
     Indication: PRODUCT USED FOR UNKNOWN INDICATION
     Dosage: 30 MG, BID
     Route: 048
  2. ASPIRIN. [Concomitant]
     Active Substance: ASPIRIN
     Indication: PRODUCT USED FOR UNKNOWN INDICATION
     Dosage: 81 MG, UNKNOWN
     Route: 048
  3. TRACLEER [Concomitant]
     Active Substance: BOSENTAN\BOSENTAN MONOHYDRATE
     Indication: PRODUCT USED FOR UNKNOWN INDICATION
     Dosage: 62.5 MG, BID
     Route: 048
  4. COLACE [Concomitant]
     Active Substance: DOCUSATE SODIUM
     Indication: CONSTIPATION
     Dosage: 50 ML, BID
     Route: 048
  5. ZOFRAN [Concomitant]
     Active Substance: ONDANSETRON HYDROCHLORIDE
     Indication: VOMITING
  6. CLARITIN [Suspect]
     Active Substance: LORATADINE
     Indication: PARANASAL SINUS HYPERSECRETION
     Dosage: 10 MG, QD
     Route: 048
  7. CLARITIN [Suspect]
     Active Substance: LORATADINE
     Indication: HYPERSENSITIVITY
  8. FLINTSTONES COMPLETE [Concomitant]
     Indication: PRODUCT USED FOR UNKNOWN INDICATION
     Dosage: UNK, UNKNOWN
     Route: 048
  9. LASIX [Concomitant]
     Active Substance: FUROSEMIDE
     Indication: PRODUCT USED FOR UNKNOWN INDICATION
     Dosage: 6 MG, BID
     Route: 048
  10. ZAROXOLYN [Concomitant]
     Active Substance: METOLAZONE
     Indication: PRODUCT USED FOR UNKNOWN INDICATION
     Dosage: 3 MG, QD
     Route: 048
  11. ZOFRAN [Concomitant]
     Active Substance: ONDANSETRON HYDROCHLORIDE
     Indication: NAUSEA
     Dosage: 4 MG, PRN
     Route: 048
  12. REVATIO [Concomitant]
     Active Substance: SILDENAFIL CITRATE
     Indication: PRODUCT USED FOR UNKNOWN INDICATION
     Dosage: 20 MG, TID
  13. ORENITRAM [Concomitant]
     Active Substance: TREPROSTINIL
     Indication: PULMONARY HYPERTENSION
     Dosage: 1 MG, TID
     Route: 048
     Dates: start: 20140626

REACTIONS (3)
  - Death [Fatal]
  - Nervousness [Unknown]
  - Anxiety [Unknown]

NARRATIVE: CASE EVENT DATE: 20150124
